FAERS Safety Report 16132630 (Version 1)
Quarter: 2019Q1

REPORT INFORMATION
  Report Type: Spontaneous
  Country: US (occurrence: US)
  Receive Date: 20190226
  Receipt Date: 20190226
  Transmission Date: 20190418
  Serious: Yes (Life-Threatening, Hospitalization)
  Sender: FDA-Public Use
  Company Number: None

PATIENT
  Age: 88 Year
  Sex: Female
  Weight: 53.98 kg

DRUGS (2)
  1. LOSARTAN. [Suspect]
     Active Substance: LOSARTAN
  2. VALSARTAN. [Suspect]
     Active Substance: VALSARTAN
     Indication: HYPERTENSION
     Dates: start: 20150713, end: 20190107

REACTIONS (7)
  - Post procedural complication [None]
  - Device occlusion [None]
  - Haemorrhage [None]
  - Pulmonary embolism [None]
  - Renal failure [None]
  - Ureteric obstruction [None]
  - Ureteric cancer [None]

NARRATIVE: CASE EVENT DATE: 20180827
